FAERS Safety Report 14848031 (Version 2)
Quarter: 2018Q2

REPORT INFORMATION
  Report Type: Spontaneous
  Country: CN (occurrence: CN)
  Receive Date: 20180504
  Receipt Date: 20180618
  Transmission Date: 20180711
  Serious: Yes (Other)
  Sender: FDA-Public Use
  Company Number: CN-GLAXOSMITHKLINE-CN2018GSK077368

PATIENT
  Age: 4 Year
  Sex: Female

DRUGS (20)
  1. IPRATROPIUM BROMIDE. [Concomitant]
     Active Substance: IPRATROPIUM BROMIDE
     Indication: RHINITIS ALLERGIC
     Dosage: UNK
  2. TERBUTALINE [Concomitant]
     Active Substance: TERBUTALINE
     Indication: RESPIRATORY SYMPTOM
  3. FLIXOTIDE [Suspect]
     Active Substance: FLUTICASONE PROPIONATE
     Indication: RESPIRATORY SYMPTOM
  4. FLIXOTIDE [Suspect]
     Active Substance: FLUTICASONE PROPIONATE
     Indication: NASOPHARYNGITIS
  5. ZYRTEC [Suspect]
     Active Substance: CETIRIZINE HYDROCHLORIDE
     Indication: PRODUCT USED FOR UNKNOWN INDICATION
     Dosage: 0.5 DF, QD
  6. BUDESONIDE. [Concomitant]
     Active Substance: BUDESONIDE
     Indication: RHINITIS ALLERGIC
     Dosage: UNK
  7. BUDESONIDE. [Concomitant]
     Active Substance: BUDESONIDE
     Indication: RESPIRATORY DISORDER
  8. TERBUTALINE [Concomitant]
     Active Substance: TERBUTALINE
     Indication: RHINITIS ALLERGIC
     Dosage: UNK
  9. VENTOLIN HFA [Suspect]
     Active Substance: ALBUTEROL SULFATE
     Indication: PRODUCT USED FOR UNKNOWN INDICATION
     Dosage: 2 PUFF(S), BID
     Route: 055
  10. SINGULAIR [Suspect]
     Active Substance: MONTELUKAST SODIUM
     Indication: PRODUCT USED FOR UNKNOWN INDICATION
     Dosage: 1 DF, QD, TABLET
  11. IPRATROPIUM BROMIDE. [Concomitant]
     Active Substance: IPRATROPIUM BROMIDE
     Indication: PERTUSSIS
  12. CLARITYNE [Suspect]
     Active Substance: LORATADINE
     Indication: PRODUCT USED FOR UNKNOWN INDICATION
     Dosage: 0.5 DF, QD
  13. TERBUTALINE [Concomitant]
     Active Substance: TERBUTALINE
     Indication: ALLERGIC COUGH
  14. FLIXOTIDE [Suspect]
     Active Substance: FLUTICASONE PROPIONATE
     Indication: RHINITIS ALLERGIC
     Dosage: UNK
     Route: 055
  15. FLIXOTIDE [Suspect]
     Active Substance: FLUTICASONE PROPIONATE
     Indication: ALLERGIC COUGH
     Dosage: 1 UNK, BID
     Route: 055
  16. BUDESONIDE. [Concomitant]
     Active Substance: BUDESONIDE
     Indication: PERTUSSIS
  17. IPRATROPIUM BROMIDE. [Concomitant]
     Active Substance: IPRATROPIUM BROMIDE
     Indication: RESPIRATORY SYMPTOM
  18. BUDESONIDE. [Concomitant]
     Active Substance: BUDESONIDE
     Indication: ALLERGIC COUGH
  19. TERBUTALINE [Concomitant]
     Active Substance: TERBUTALINE
     Indication: PERTUSSIS
  20. IPRATROPIUM BROMIDE. [Concomitant]
     Active Substance: IPRATROPIUM BROMIDE
     Indication: ALLERGIC COUGH

REACTIONS (5)
  - Drug prescribing error [Unknown]
  - Pertussis [Unknown]
  - Cough [Recovering/Resolving]
  - Product use in unapproved indication [Unknown]
  - Overdose [Unknown]
